FAERS Safety Report 15315478 (Version 1)
Quarter: 2018Q3

REPORT INFORMATION
  Report Type: Spontaneous
  Country: US (occurrence: US)
  Receive Date: 20180824
  Receipt Date: 20180824
  Transmission Date: 20181010
  Serious: No
  Sender: FDA-Public Use
  Company Number: US-SA-2018SA234791

PATIENT
  Sex: Female

DRUGS (1)
  1. LOVENOX [Suspect]
     Active Substance: ENOXAPARIN SODIUM
     Indication: CARDIOVASCULAR DISORDER
     Dosage: 1 DF, QD
     Dates: start: 20180816, end: 20180817

REACTIONS (3)
  - Contusion [Unknown]
  - Application site haemorrhage [Unknown]
  - Chest pain [Unknown]
